FAERS Safety Report 20880960 (Version 1)
Quarter: 2022Q2

REPORT INFORMATION
  Report Type: Spontaneous
  Country: US (occurrence: US)
  Receive Date: 20220526
  Receipt Date: 20220526
  Transmission Date: 20220720
  Serious: No
  Sender: FDA-Public Use
  Company Number: US-RADIUS HEALTH INC.-2022US001489

PATIENT
  Age: 77 Year
  Sex: Female

DRUGS (1)
  1. TYMLOS [Suspect]
     Active Substance: ABALOPARATIDE
     Indication: Osteoporosis
     Dosage: 80 MICROGRAM, QD
     Route: 065
     Dates: start: 20220323, end: 20220327

REACTIONS (8)
  - Confusional state [Recovering/Resolving]
  - Hypersomnia [Recovering/Resolving]
  - Joint swelling [Recovered/Resolved]
  - Balance disorder [Recovering/Resolving]
  - Feeling cold [Recovering/Resolving]
  - Flushing [Recovered/Resolved]
  - Peripheral swelling [Recovering/Resolving]
  - Dizziness [Recovering/Resolving]

NARRATIVE: CASE EVENT DATE: 20220323
